FAERS Safety Report 7029616-3 (Version None)
Quarter: 2010Q4

REPORT INFORMATION
  Report Type: 
  Country: None (occurrence: None)
  Receive Date: 20101005
  Receipt Date: 20100923
  Transmission Date: 20110411
  Serious: Yes (Disabling, Other)
  Sender: FDA-Public Use
  Company Number: GB-MERCK-1005GBR00001

PATIENT
  Age: 55 Year
  Sex: Female

DRUGS (7)
  1. ZOCOR [Suspect]
     Route: 048
     Dates: start: 20030101, end: 20030101
  2. ATORVASTATIN CALCIUM [Suspect]
     Route: 065
     Dates: start: 20030310
  3. ATORVASTATIN CALCIUM [Suspect]
     Route: 065
     Dates: start: 19981113, end: 20061128
  4. ESTRADIOL AND NORETHINDRONE ACETATE [Concomitant]
     Route: 065
  5. ESTRADIOL AND NORETHINDRONE ACETATE [Concomitant]
     Route: 065
  6. PRAVASTATIN SODIUM [Suspect]
     Route: 065
  7. LANSOPRAZOLE [Concomitant]
     Route: 065

REACTIONS (24)
  - ABDOMINAL DISCOMFORT [None]
  - ABDOMINAL PAIN UPPER [None]
  - ANGIOEDEMA [None]
  - ARTHRITIS [None]
  - ASTHENIA [None]
  - BLEPHARITIS [None]
  - BLOOD CHOLESTEROL INCREASED [None]
  - CONJUNCTIVITIS [None]
  - DRUG INEFFECTIVE [None]
  - DRY MOUTH [None]
  - DYSPEPSIA [None]
  - GASTRIC ULCER [None]
  - GASTROENTERITIS [None]
  - MEMORY IMPAIRMENT [None]
  - MUSCLE ATROPHY [None]
  - MUSCLE INJURY [None]
  - MYALGIA [None]
  - PAIN IN EXTREMITY [None]
  - POST VIRAL FATIGUE SYNDROME [None]
  - RESTLESS LEGS SYNDROME [None]
  - ROAD TRAFFIC ACCIDENT [None]
  - SALIVARY HYPERSECRETION [None]
  - UNEVALUABLE EVENT [None]
  - URTICARIA [None]
